FAERS Safety Report 7071855-X (Version None)
Quarter: 2010Q4

REPORT INFORMATION
  Report Type: 
  Country: None (occurrence: None)
  Receive Date: 20101029
  Receipt Date: 20091028
  Transmission Date: 20110411
  Serious: No
  Sender: FDA-Public Use
  Company Number: A0813798A

PATIENT
  Sex: Female

DRUGS (7)
  1. ADVAIR DISKUS 100/50 [Suspect]
     Indication: ASTHMA
     Dosage: 1PUFF TWICE PER DAY
     Route: 055
  2. PREDNISONE [Concomitant]
  3. SULFAMETHOXAZOLE AND TRIMETHOPRIM [Concomitant]
  4. ZYRTEC [Concomitant]
  5. PROAIR HFA [Concomitant]
  6. FLUTICASONE PROPIONATE [Concomitant]
  7. ALBUTEROL [Concomitant]

REACTIONS (3)
  - TOOTH ABSCESS [None]
  - TOOTH DISORDER [None]
  - TOOTH EROSION [None]
